FAERS Safety Report 9555517 (Version 2)
Quarter: 2013Q4

REPORT INFORMATION
  Report Type: Spontaneous
  Country: US (occurrence: None)
  Receive Date: 20130724
  Receipt Date: 20131226
  Transmission Date: 20140711
  Serious: Yes (Other)
  Sender: FDA-Public Use
  Company Number: PHEH2013US008771

PATIENT
  Age: 44 Year
  Sex: Male
  Weight: 108 kg

DRUGS (4)
  1. GILENYA (FINGOLIMOD) CAPSULE, 0.5MG [Suspect]
     Indication: RELAPSING-REMITTING MULTIPLE SCLEROSIS
     Route: 048
     Dates: start: 20120618
  2. AMPYRA (FAMPRIDINE) [Concomitant]
  3. DITROPAN (OXYBUTYNIN HYDROCHLORIDE) [Concomitant]
  4. SOLUMEDROL (METHYLPREDNISOLONE SODIUM SUCCINATE) [Concomitant]

REACTIONS (5)
  - Herpes zoster [None]
  - White blood cell count decreased [None]
  - Post herpetic neuralgia [None]
  - Skin hyperpigmentation [None]
  - Scar [None]
